FAERS Safety Report 10189661 (Version 1)
Quarter: 2014Q2

REPORT INFORMATION
  Report Type: Spontaneous
  Country: US (occurrence: US)
  Receive Date: 20140522
  Receipt Date: 20140522
  Transmission Date: 20141212
  Serious: Yes (Hospitalization)
  Sender: FDA-Public Use
  Company Number: US-SANOFI-AVENTIS-2013SA085237

PATIENT
  Age: 74 Year
  Sex: Female

DRUGS (3)
  1. LANTUS SOLOSTAR [Suspect]
     Dosage: DOSE:10 UNIT(S)
     Route: 051
  2. INSULIN [Suspect]
     Dosage: DOSE:12 UNIT(S)
     Route: 065
  3. SOLOSTAR [Concomitant]

REACTIONS (7)
  - Blood glucose decreased [Unknown]
  - Loss of consciousness [Unknown]
  - Immobile [Unknown]
  - Adverse event [Unknown]
  - Visual impairment [Unknown]
  - Memory impairment [Unknown]
  - Hyperglycaemia [Unknown]
